FAERS Safety Report 23224904 (Version 1)
Quarter: 2023Q4

REPORT INFORMATION
  Report Type: Spontaneous
  Country: US (occurrence: US)
  Receive Date: 20231124
  Receipt Date: 20231124
  Transmission Date: 20240109
  Serious: Yes (Hospitalization)
  Sender: FDA-Public Use
  Company Number: US-BRISTOL-MYERS SQUIBB COMPANY-2023-168966

PATIENT
  Age: 76 Year
  Sex: Male

DRUGS (1)
  1. REVLIMID [Suspect]
     Active Substance: LENALIDOMIDE
     Indication: Plasma cell myeloma
     Dosage: LENALIDOMIDE DAILY FOR 14 DAYS, THEN 7 DAYS OF
     Route: 048

REACTIONS (3)
  - Diarrhoea [Unknown]
  - Nausea [Unknown]
  - Off label use [Unknown]
